FAERS Safety Report 9016803 (Version 1)
Quarter: 2013Q1

REPORT INFORMATION
  Report Type: Spontaneous
  Country: US (occurrence: US)
  Receive Date: 20130117
  Receipt Date: 20130117
  Transmission Date: 20140127
  Serious: Yes (Other)
  Sender: FDA-Public Use
  Company Number: PHEH2013US001342

PATIENT
  Age: 83 Year
  Sex: Male

DRUGS (1)
  1. EXELON PATCH [Suspect]
     Dosage: 4.6 MG, 1 PATCH DAILY
     Route: 062

REACTIONS (2)
  - Parkinson^s disease [Unknown]
  - Tremor [Unknown]
